FAERS Safety Report 5454902-8 (Version None)
Quarter: 2007Q3

REPORT INFORMATION
  Report Type: 
  Country: None (occurrence: None)
  Receive Date: 20070917
  Receipt Date: 20061030
  Transmission Date: 20080115
  Serious: No
  Sender: FDA-Public Use
  Company Number: US-ASTRAZENECA-2006UW20731

PATIENT
  Age: 58 Year
  Sex: Female
  Weight: 99.8 kg

DRUGS (5)
  1. SEROQUEL [Suspect]
     Indication: DEPRESSION
     Route: 048
     Dates: start: 20060701
  2. SEROQUEL [Suspect]
     Indication: SLEEP DISORDER
     Route: 048
     Dates: start: 20060701
  3. GLUCOVANCE [Concomitant]
  4. ANTIHYPERTENSIVE [Concomitant]
  5. LIPITOR [Concomitant]

REACTIONS (3)
  - IRRITABILITY [None]
  - SLUGGISHNESS [None]
  - THERAPEUTIC RESPONSE UNEXPECTED [None]
